FAERS Safety Report 23727397 (Version 1)
Quarter: 2024Q2

REPORT INFORMATION
  Report Type: Other
  Country: IE (occurrence: None)
  Receive Date: 20240410
  Receipt Date: 20240410
  Transmission Date: 20240715
  Serious: No
  Sender: FDA-Public Use
  Company Number: IE-ROCHE-3541703

PATIENT
  Sex: Female

DRUGS (1)
  1. OCREVUS [Suspect]
     Active Substance: OCRELIZUMAB
     Indication: Product used for unknown indication
     Route: 042
     Dates: start: 20230927

REACTIONS (3)
  - COVID-19 [Recovered/Resolved]
  - Oral herpes [Recovered/Resolved]
  - Gingival blister [Recovered/Resolved]

NARRATIVE: CASE EVENT DATE: 20240403
